FAERS Safety Report 9881205 (Version 1)
Quarter: 2014Q1

REPORT INFORMATION
  Report Type: Spontaneous
  Country: GB (occurrence: GB)
  Receive Date: 20140207
  Receipt Date: 20140207
  Transmission Date: 20141002
  Serious: Yes (Other)
  Sender: FDA-Public Use
  Company Number: PHFR2014GB001272

PATIENT
  Sex: Male

DRUGS (3)
  1. TASIGNA [Suspect]
  2. GLIVEC [Interacting]
  3. PHENOBARBITONE [Interacting]
     Dosage: UNK

REACTIONS (3)
  - Cerebrovascular accident [Unknown]
  - Drug interaction [Unknown]
  - Drug ineffective [Unknown]
